FAERS Safety Report 4790572-X (Version None)
Quarter: 2005Q4

REPORT INFORMATION
  Report Type: 
  Country: None (occurrence: None)
  Receive Date: 20051005
  Receipt Date: 20050927
  Transmission Date: 20060501
  Serious: Yes (Death, Hospitalization)
  Sender: FDA-Public Use
  Company Number: 163-20785-05080222

PATIENT
  Age: 73 Year
  Sex: Male

DRUGS (14)
  1. THALOMID [Suspect]
     Indication: HYPERGAMMAGLOBULINAEMIA BENIGN MONOCLONAL
     Dosage: 50-100 MG, QD, ORAL
     Route: 048
     Dates: start: 20041015, end: 20050101
  2. LASIX [Concomitant]
  3. CALCIUM CARBONATE (CALCIUM CARBONATE) [Concomitant]
  4. MAGNESIUM CHLORIDE (MAGNESIUM CHLORIDE ANHYDROUS) [Concomitant]
  5. PIORICET (FIORICET W/CODEINE) [Concomitant]
  6. RANITIDINE [Concomitant]
  7. PREDNISONE [Concomitant]
  8. IMODIUM [Concomitant]
  9. BACTRIM [Concomitant]
  10. CIPRO [Concomitant]
  11. FLAGYL [Concomitant]
  12. MORPHINE [Concomitant]
  13. NEUMEGA [Concomitant]
  14. VITAMIN E [Concomitant]

REACTIONS (8)
  - ACUTE LEUKAEMIA [None]
  - DISEASE PROGRESSION [None]
  - DUODENITIS [None]
  - FEBRILE NEUTROPENIA [None]
  - MYELODYSPLASTIC SYNDROME [None]
  - PNEUMONIA [None]
  - RENAL FAILURE [None]
  - SPLENOMEGALY [None]
